FAERS Safety Report 12862824 (Version 1)
Quarter: 2016Q4

REPORT INFORMATION
  Report Type: Spontaneous
  Country: IE (occurrence: IE)
  Receive Date: 20161019
  Receipt Date: 20161019
  Transmission Date: 20170207
  Serious: Yes (Life-Threatening, Hospitalization, Disabling, Other)
  Sender: FDA-Public Use
  Company Number: IE-JNJFOC-20161013478

PATIENT
  Age: 71 Year
  Sex: Male

DRUGS (7)
  1. COMBODART [Concomitant]
     Active Substance: DUTASTERIDE\TAMSULOSIN
     Indication: BENIGN PROSTATIC HYPERPLASIA
     Route: 065
     Dates: start: 20131201, end: 20160929
  2. ARICEPT [Concomitant]
     Active Substance: DONEPEZIL HYDROCHLORIDE
     Route: 065
     Dates: start: 20140601, end: 20160929
  3. CARBIDOPA. [Concomitant]
     Active Substance: CARBIDOPA
     Route: 065
     Dates: start: 20130901, end: 20160929
  4. ROSUVASTATIN. [Concomitant]
     Active Substance: ROSUVASTATIN
     Route: 065
     Dates: start: 20131103, end: 20160929
  5. BISOPROLOL [Concomitant]
     Active Substance: BISOPROLOL
     Indication: ATRIAL FIBRILLATION
     Route: 065
     Dates: start: 20131201, end: 20160929
  6. LUSTRAL [Concomitant]
     Active Substance: SERTRALINE HYDROCHLORIDE
     Indication: DEPRESSION
     Route: 065
     Dates: start: 20150607, end: 20160929
  7. XARELTO [Suspect]
     Active Substance: RIVAROXABAN
     Indication: ATRIAL FIBRILLATION
     Route: 048
     Dates: start: 20160617, end: 20160928

REACTIONS (3)
  - Unresponsive to stimuli [Unknown]
  - Cerebral haemorrhage [Unknown]
  - Facial paresis [Unknown]

NARRATIVE: CASE EVENT DATE: 20160928
